FAERS Safety Report 24919248 (Version 1)
Quarter: 2025Q1

REPORT INFORMATION
  Report Type: Spontaneous
  Country: US (occurrence: US)
  Receive Date: 20250204
  Receipt Date: 20250204
  Transmission Date: 20250408
  Serious: No
  Sender: TARO
  Company Number: US-TARO PHARMACEUTICALS USA INC.-2024TAR02101

PATIENT

DRUGS (1)
  1. ADAPALENE [Suspect]
     Active Substance: ADAPALENE
     Indication: Acne
     Dosage: ONCE A DAY EVERYOTHER DAY
     Route: 065
     Dates: start: 202406

REACTIONS (3)
  - Acne [Unknown]
  - Skin irritation [Unknown]
  - Scab [Unknown]

NARRATIVE: CASE EVENT DATE: 20240701
